FAERS Safety Report 6404407-2 (Version None)
Quarter: 2009Q4

REPORT INFORMATION
  Report Type: 
  Country: None (occurrence: None)
  Receive Date: 20091016
  Receipt Date: 20091012
  Transmission Date: 20100525
  Serious: Yes (Death, Hospitalization)
  Sender: FDA-Public Use
  Company Number: SE-MERCK-0910SWE00015

PATIENT
  Age: 86 Year
  Sex: Female

DRUGS (9)
  1. HYZAAR [Suspect]
     Route: 048
     Dates: start: 20070502, end: 20090729
  2. IBUPROFEN [Suspect]
     Route: 048
     Dates: start: 20081217, end: 20090710
  3. ZOLPIDEM TARTRATE [Concomitant]
     Route: 048
  4. METOPROLOL TARTRATE [Concomitant]
     Route: 048
  5. MIRTAZAPINE [Concomitant]
     Route: 048
  6. ACETAMINOPHEN [Concomitant]
     Route: 048
  7. FUROSEMIDE [Concomitant]
     Route: 048
  8. METOPROLOL TARTRATE [Concomitant]
     Route: 048
  9. ALLOPURINOL [Concomitant]
     Route: 048

REACTIONS (2)
  - DRUG INTERACTION [None]
  - RENAL FAILURE ACUTE [None]
